FAERS Safety Report 7005238-5 (Version None)
Quarter: 2010Q3

REPORT INFORMATION
  Report Type: 
  Country: None (occurrence: None)
  Receive Date: 20100920
  Receipt Date: 20100920
  Transmission Date: 20110219
  Serious: Yes (Other)
  Sender: FDA-Public Use
  Company Number: None

PATIENT
  Age: 63 Year
  Sex: Female
  Weight: 70.3075 kg

DRUGS (1)
  1. METHSCOPOLAMINE BROMIDE [Suspect]
     Indication: IRRITABLE BOWEL SYNDROME
     Dosage: 1 TAB FOUR TIMES DAILT- AS NED  2 X DAILY PO
     Route: 048
     Dates: start: 20090101, end: 20090819

REACTIONS (9)
  - DRY EYE [None]
  - DRY MOUTH [None]
  - EYE PAIN [None]
  - HEADACHE [None]
  - JOINT SWELLING [None]
  - NIGHTMARE [None]
  - OEDEMA PERIPHERAL [None]
  - URINE OUTPUT DECREASED [None]
  - VISUAL IMPAIRMENT [None]
